FAERS Safety Report 23225493 (Version 1)
Quarter: 2023Q4

REPORT INFORMATION
  Report Type: Spontaneous
  Country: CN (occurrence: None)
  Receive Date: 20231124
  Receipt Date: 20231124
  Transmission Date: 20240109
  Serious: Yes (Death)
  Sender: FDA-Public Use
  Company Number: CN-ROCHE-3457487

PATIENT

DRUGS (1)
  1. ATEZOLIZUMAB [Suspect]
     Active Substance: ATEZOLIZUMAB
     Indication: Non-small cell lung cancer
     Dosage: DAY 1
     Route: 041

REACTIONS (26)
  - Acute left ventricular failure [Fatal]
  - Immune-mediated hepatitis [Fatal]
  - Myasthenia gravis [Fatal]
  - Death [Fatal]
  - Dyspnoea [Unknown]
  - Cough [Unknown]
  - Anaemia [Unknown]
  - Angiopathy [Unknown]
  - Metabolic disorder [Unknown]
  - Cardiac disorder [Unknown]
  - Musculoskeletal disorder [Unknown]
  - Gastrointestinal disorder [Unknown]
  - Nervous system disorder [Unknown]
  - Mental disorder [Unknown]
  - Hepatobiliary disease [Unknown]
  - Skin disorder [Unknown]
  - Eye disorder [Unknown]
  - Ear disorder [Unknown]
  - Immune system disorder [Unknown]
  - Congenital anomaly [Unknown]
  - Medical procedure [Unknown]
  - Immune system disorder [Unknown]
  - Hepatobiliary disease [Unknown]
  - Renal disorder [Unknown]
  - Urinary tract disorder [Unknown]
  - Endocrine disorder [Unknown]
